FAERS Safety Report 5467430-0 (Version None)
Quarter: 2007Q3

REPORT INFORMATION
  Report Type: 
  Country: None (occurrence: None)
  Receive Date: 20070925
  Receipt Date: 20070913
  Transmission Date: 20080115
  Serious: Yes (Other)
  Sender: FDA-Public Use
  Company Number: AU-PFIZER INC-2007077229

PATIENT
  Sex: Female

DRUGS (2)
  1. PHENYTOIN [Suspect]
  2. IBUPROFEN [Concomitant]

REACTIONS (1)
  - FATTY LIVER ALCOHOLIC [None]
